FAERS Safety Report 7564661-0 (Version None)
Quarter: 2011Q2

REPORT INFORMATION
  Report Type: 
  Country: None (occurrence: None)
  Receive Date: 20110622
  Receipt Date: 20101129
  Transmission Date: 20111010
  Serious: Yes (Other)
  Sender: FDA-Public Use
  Company Number: US-MYLANLABS-2010S1014339

PATIENT
  Age: 59 Year
  Sex: Female
  Weight: 56.47 kg

DRUGS (15)
  1. CLOZAPINE [Suspect]
     Dates: start: 20100917, end: 20100930
  2. COLACE [Concomitant]
  3. REMERON [Concomitant]
  4. EFFEXOR XR [Concomitant]
  5. RISPERDAL [Concomitant]
  6. FOSAMAX [Concomitant]
  7. SYNTHROID [Concomitant]
  8. LITHIUM [Concomitant]
     Indication: MANIA
     Dates: start: 19800101
  9. PRILOSEC [Concomitant]
  10. CLOZAPINE [Suspect]
  11. CLOZAPINE [Suspect]
     Indication: BIPOLAR DISORDER
     Dates: start: 20090701, end: 20100914
  12. TEGRETOL [Concomitant]
  13. POTASSIUM CHLORIDE [Concomitant]
  14. DEPAKOTE ER [Concomitant]
     Indication: CONVULSION
     Dosage: USING 500MG
     Dates: start: 20010101
  15. MULTI-VITAMIN [Concomitant]

REACTIONS (1)
  - GRANULOCYTOPENIA [None]
